FAERS Safety Report 15349907 (Version 1)
Quarter: 2018Q3

REPORT INFORMATION
  Report Type: Report from Study
  Country: BR (occurrence: BR)
  Receive Date: 20180904
  Receipt Date: 20180904
  Transmission Date: 20181010
  Serious: Yes (Other)
  Sender: FDA-Public Use
  Company Number: PHHY2014BR162993

PATIENT
  Sex: Female
  Weight: 50 kg

DRUGS (5)
  1. EXJADE [Suspect]
     Active Substance: DEFERASIROX
     Dosage: 20 MG/KG, QD (2 DF OF 500 MG)
     Route: 065
  2. EXJADE [Suspect]
     Active Substance: DEFERASIROX
     Indication: SICKLE CELL ANAEMIA
     Dosage: 20 MG/KG, QD (2 DF OF 500 MG)
     Route: 065
     Dates: start: 201310
  3. FOLIC ACID. [Concomitant]
     Active Substance: FOLIC ACID
     Indication: SICKLE CELL ANAEMIA
     Dosage: 5 DF, QW (2 TABLETS DURING WEEK AND 3 TABLETS ON WEEKEND)
     Route: 065
  4. HYDROXYUREA. [Concomitant]
     Active Substance: HYDROXYUREA
     Indication: SICKLE CELL ANAEMIA
     Dosage: 2 DF, QD
     Route: 065
     Dates: start: 2010
  5. EXJADE [Suspect]
     Active Substance: DEFERASIROX
     Dosage: 1000 MG, QD
     Route: 048
     Dates: end: 2017

REACTIONS (14)
  - Dermatitis allergic [Recovered/Resolved]
  - Skin warm [Recovered/Resolved]
  - Pruritus generalised [Recovered/Resolved]
  - Blister [Recovered/Resolved]
  - Leukopenia [Recovered/Resolved]
  - Rash erythematous [Recovered/Resolved]
  - Nausea [Unknown]
  - Malaise [Unknown]
  - Pallor [Unknown]
  - Asthenia [Unknown]
  - Rash [Unknown]
  - Vertigo [Unknown]
  - Blood iron increased [Unknown]
  - Pruritus generalised [Unknown]
